FAERS Safety Report 21217201 (Version 1)
Quarter: 2022Q3

REPORT INFORMATION
  Report Type: Spontaneous
  Country: US (occurrence: None)
  Receive Date: 20220815
  Receipt Date: 20220815
  Transmission Date: 20221027
  Serious: No
  Sender: FDA-Public Use
  Company Number: None

PATIENT
  Sex: Female

DRUGS (2)
  1. UPTRAVI [Suspect]
     Active Substance: SELEXIPAG
     Indication: Pulmonary arterial hypertension
  2. c-tadalafil susp 5mg/ml cipla usa [Concomitant]

REACTIONS (3)
  - Vomiting [None]
  - Cardiac disorder [None]
  - Influenza [None]
